FAERS Safety Report 15300395 (Version 1)
Quarter: 2018Q3

REPORT INFORMATION
  Report Type: Spontaneous
  Country: US (occurrence: US)
  Receive Date: 20180808
  Receipt Date: 20180808
  Transmission Date: 20181010
  Serious: No
  Sender: FDA-Public Use
  Company Number: None

PATIENT

DRUGS (1)
  1. PENICILLIN [Suspect]
     Active Substance: PENICILLIN

REACTIONS (4)
  - Pyrexia [None]
  - Urticaria [None]
  - Arthralgia [None]
  - Serum sickness [None]
